FAERS Safety Report 15427256 (Version 2)
Quarter: 2019Q2

REPORT INFORMATION
  Report Type: Spontaneous
  Country: DE (occurrence: DE)
  Receive Date: 20180925
  Receipt Date: 20190408
  Transmission Date: 20190711
  Serious: Yes (Hospitalization)
  Sender: FDA-Public Use
  Company Number: PHHY2018DE105742

PATIENT
  Age: 75 Year
  Sex: Male

DRUGS (2)
  1. BENEPALI [Suspect]
     Active Substance: ETANERCEPT
     Indication: RHEUMATOID ARTHRITIS
     Dosage: 50 MG, UNK (EVERY 10 DAYS)
     Route: 058
     Dates: start: 201704
  2. METHOTREXATE. [Suspect]
     Active Substance: METHOTREXATE
     Indication: PRODUCT USED FOR UNKNOWN INDICATION
     Dosage: 20 MG, QW
     Route: 065

REACTIONS (2)
  - Product use issue [Unknown]
  - Bladder transitional cell carcinoma recurrent [Recovered/Resolved]

NARRATIVE: CASE EVENT DATE: 20171129
